FAERS Safety Report 4671215-2 (Version None)
Quarter: 2005Q2

REPORT INFORMATION
  Report Type: 
  Country: None (occurrence: None)
  Receive Date: 20050523
  Receipt Date: 20050511
  Transmission Date: 20051028
  Serious: Yes (Disabling, Other)
  Sender: FDA-Public Use
  Company Number: 2005-05-0669

PATIENT
  Age: 15 Year
  Sex: Female

DRUGS (3)
  1. SALBUTAMOL SULPHATE ORAL AEROSOL [Suspect]
     Indication: ASTHMA
     Dosage: 1-2 PUFFS ORAL AER INH
     Route: 055
     Dates: start: 20050318, end: 20050321
  2. TRIMETHOPRIM [Concomitant]
  3. DESOGESTREL [Concomitant]

REACTIONS (4)
  - CARDIAC FAILURE [None]
  - CONVULSION [None]
  - LOSS OF CONSCIOUSNESS [None]
  - SYNCOPE [None]
